FAERS Safety Report 9570334 (Version 1)
Quarter: 2013Q3

REPORT INFORMATION
  Report Type: Spontaneous
  Country: US (occurrence: None)
  Receive Date: 20130926
  Receipt Date: 20130926
  Transmission Date: 20140515
  Serious: Yes (Other)
  Sender: FDA-Public Use
  Company Number: None

PATIENT
  Age: 55 Year
  Sex: Male
  Weight: 97.52 kg

DRUGS (2)
  1. CIPRO [Suspect]
     Indication: LOCALISED INFECTION
     Route: 048
     Dates: start: 20130816, end: 20130924
  2. CIPRO [Suspect]
     Indication: TIBIA FRACTURE
     Route: 048
     Dates: start: 20130816, end: 20130924

REACTIONS (2)
  - Trigger finger [None]
  - Tendon disorder [None]
